FAERS Safety Report 9161904 (Version 1)
Quarter: 2013Q1

REPORT INFORMATION
  Report Type: Spontaneous
  Country: US (occurrence: None)
  Receive Date: 20130221
  Receipt Date: 20130221
  Transmission Date: 20140127
  Serious: Yes (Disabling)
  Sender: FDA-Public Use
  Company Number: 2013MA000996

PATIENT
  Age: 58 Year
  Sex: Female

DRUGS (1)
  1. GABAPENTIN [Suspect]
     Route: 048
     Dates: start: 2012, end: 2012

REACTIONS (9)
  - Bedridden [None]
  - Drug ineffective [None]
  - Hyperhidrosis [None]
  - Urticaria [None]
  - Pharyngeal oedema [None]
  - Muscle spasms [None]
  - Malaise [None]
  - General symptom [None]
  - Condition aggravated [None]
